FAERS Safety Report 9331802 (Version 2)
Quarter: 2013Q2

REPORT INFORMATION
  Report Type: Spontaneous
  Country: US (occurrence: US)
  Receive Date: 20130605
  Receipt Date: 20130626
  Transmission Date: 20140414
  Serious: Yes (Hospitalization)
  Sender: FDA-Public Use
  Company Number: PHHY2013US055428

PATIENT
  Age: 73 Year
  Sex: Female

DRUGS (1)
  1. WARFARIN [Suspect]

REACTIONS (9)
  - Upper airway obstruction [Recovered/Resolved]
  - Speech disorder [Recovering/Resolving]
  - Tongue haematoma [Recovered/Resolved]
  - Tongue haemorrhage [Recovered/Resolved]
  - Ecchymosis [Recovered/Resolved]
  - Swollen tongue [Recovered/Resolved]
  - International normalised ratio increased [Recovered/Resolved]
  - Coagulopathy [Recovered/Resolved]
  - Tongue oedema [Recovered/Resolved]
